FAERS Safety Report 5467131-9 (Version None)
Quarter: 2007Q3

REPORT INFORMATION
  Report Type: 
  Country: None (occurrence: None)
  Receive Date: 20070925
  Receipt Date: 20070921
  Transmission Date: 20080115
  Serious: No
  Sender: FDA-Public Use
  Company Number: US-MERCK-0708USA05560

PATIENT
  Age: 70 Year
  Sex: Female
  Weight: 68 kg

DRUGS (5)
  1. JANUVIA [Suspect]
     Indication: DIABETES MELLITUS
     Route: 048
     Dates: start: 20070801, end: 20070817
  2. PRAVACHOL [Concomitant]
     Indication: LIPIDS INCREASED
     Route: 048
     Dates: start: 20050101
  3. METFORMIN [Concomitant]
     Indication: DIABETES MELLITUS
     Route: 048
     Dates: start: 20050101
  4. ALTACE [Concomitant]
     Indication: HYPERTENSION
     Route: 048
     Dates: start: 20050101
  5. ASPIRIN [Concomitant]
     Route: 048
     Dates: start: 20050101

REACTIONS (2)
  - BLOOD CREATININE INCREASED [None]
  - BLOOD UREA INCREASED [None]
